FAERS Safety Report 5910744-8 (Version None)
Quarter: 2008Q4

REPORT INFORMATION
  Report Type: 
  Country: None (occurrence: None)
  Receive Date: 20081007
  Receipt Date: 20080410
  Transmission Date: 20090506
  Serious: No
  Sender: FDA-Public Use
  Company Number: US-ASTRAZENECA-2008UW07331

PATIENT
  Age: 66 Year
  Sex: Female
  Weight: 86.2 kg

DRUGS (3)
  1. ARIMIDEX [Suspect]
     Indication: BREAST CANCER
     Dates: start: 20030101
  2. LEVOTHYROXINE SODIUM [Concomitant]
  3. CALCIUM [Concomitant]

REACTIONS (2)
  - LIMB DISCOMFORT [None]
  - OSTEOARTHRITIS [None]
